FAERS Safety Report 6443392-4 (Version None)
Quarter: 2009Q4

REPORT INFORMATION
  Report Type: 
  Country: None (occurrence: None)
  Receive Date: 20091113
  Receipt Date: 20091103
  Transmission Date: 20100525
  Serious: Yes (Other)
  Sender: FDA-Public Use
  Company Number: 232609J09USA

PATIENT
  Age: 31 Year
  Sex: Female

DRUGS (2)
  1. REBIF [Suspect]
     Indication: MULTIPLE SCLEROSIS
     Dosage: 44 MCG, 3 IN 1 WEEKS, SUBCUTANEOUS
     Route: 058
     Dates: start: 20071203
  2. LORAZEPAM [Concomitant]

REACTIONS (4)
  - CONDITION AGGRAVATED [None]
  - OPTIC NEURITIS [None]
  - RASH [None]
  - VIRAL INFECTION [None]
